FAERS Safety Report 12766801 (Version 1)
Quarter: 2016Q3

REPORT INFORMATION
  Report Type: Spontaneous
  Country: US (occurrence: US)
  Receive Date: 20160916
  Receipt Date: 20160916
  Transmission Date: 20161109
  Serious: No
  Sender: FDA-Public Use
  Company Number: None

PATIENT
  Age: 56 Year
  Sex: Male

DRUGS (1)
  1. NAFCILLIN [Suspect]
     Active Substance: NAFCILLIN\NAFCILLIN SODIUM
     Indication: SEPSIS
     Dosage: 2 GM Q4HOURS IV
     Route: 042
     Dates: start: 20160624, end: 20160705

REACTIONS (1)
  - Urticaria [None]

NARRATIVE: CASE EVENT DATE: 20160705
